FAERS Safety Report 13551690 (Version 3)
Quarter: 2017Q2

REPORT INFORMATION
  Report Type: Spontaneous
  Country: US (occurrence: US)
  Receive Date: 20170516
  Receipt Date: 20170615
  Transmission Date: 20170830
  Serious: Yes (Hospitalization)
  Sender: FDA-Public Use
  Company Number: US-ACTELION-A-NJ2017-153898

PATIENT
  Age: 76 Year
  Sex: Female

DRUGS (1)
  1. TRACLEER [Suspect]
     Active Substance: BOSENTAN
     Indication: PRODUCT USED FOR UNKNOWN INDICATION
     Dosage: 125 MG, UNK
     Route: 048
     Dates: start: 20161223

REACTIONS (5)
  - Back pain [Not Recovered/Not Resolved]
  - Dizziness [Unknown]
  - Fall [Not Recovered/Not Resolved]
  - Back disorder [Unknown]
  - Femur fracture [Unknown]

NARRATIVE: CASE EVENT DATE: 20170430
